FAERS Safety Report 26013551 (Version 1)
Quarter: 2025Q4

REPORT INFORMATION
  Report Type: Spontaneous
  Country: US (occurrence: US)
  Receive Date: 20251107
  Receipt Date: 20251107
  Transmission Date: 20260117
  Serious: No
  Sender: NOVARTIS
  Company Number: US-002147023-NVSC2025US170761

PATIENT
  Sex: Female

DRUGS (1)
  1. LEQVIO [Suspect]
     Active Substance: INCLISIRAN SODIUM
     Indication: Hypercholesterolaemia
     Dosage: 284.15 MG (1 START, 1 3MOS, THEN EVERY 6 MOS)
     Route: 058
     Dates: start: 20251010

REACTIONS (1)
  - Influenza like illness [Recovered/Resolved]
